FAERS Safety Report 18055648 (Version 1)
Quarter: 2020Q3

REPORT INFORMATION
  Report Type: Spontaneous
  Country: GB (occurrence: GB)
  Receive Date: 20200722
  Receipt Date: 20200722
  Transmission Date: 20201103
  Serious: Yes (Other)
  Sender: FDA-Public Use
  Company Number: GB-ASCEND THERAPEUTICS US, LLC-2087611

PATIENT
  Age: 50 Year
  Sex: Female
  Weight: 63.5 kg

DRUGS (7)
  1. UTROGESTAN (MICRONIZED PROGESTERONE), UNKNOWN [Concomitant]
     Route: 065
  2. SUMATRIPTAN SUCCINATE. [Concomitant]
     Active Substance: SUMATRIPTAN SUCCINATE
     Route: 065
  3. ESTROGEL [Suspect]
     Active Substance: ESTRADIOL
     Indication: HORMONE REPLACEMENT THERAPY
     Route: 061
     Dates: start: 20191012, end: 20200320
  4. ESTROGEL [Suspect]
     Active Substance: ESTRADIOL
  5. OESTRODOSE (ESTRADIOL), UNKNOWN, UNKNOWN [Suspect]
     Active Substance: ESTRADIOL
     Route: 061
     Dates: start: 20200308
  6. OESTRODOSE (ESTRADIOL), UNKNOWN, UNKNOWN [Suspect]
     Active Substance: ESTRADIOL
     Route: 061
     Dates: start: 20191012
  7. OESTROGEL (ESTRADIOL), UNKNOWN [Concomitant]
     Route: 065

REACTIONS (7)
  - Anxiety [Not Recovered/Not Resolved]
  - Haemorrhage [Not Recovered/Not Resolved]
  - Drug ineffective [Unknown]
  - Lethargy [Not Recovered/Not Resolved]
  - Hot flush [Not Recovered/Not Resolved]
  - Menopausal symptoms [Unknown]
  - Product substitution issue [Unknown]

NARRATIVE: CASE EVENT DATE: 20200310
